FAERS Safety Report 24895922 (Version 1)
Quarter: 2025Q1

REPORT INFORMATION
  Report Type: Spontaneous
  Country: CN (occurrence: CN)
  Receive Date: 20250128
  Receipt Date: 20250128
  Transmission Date: 20250409
  Serious: Yes (Other)
  Sender: NOVARTIS
  Company Number: CN-002147023-NVSC2025CN009493

PATIENT
  Age: 18 Year
  Sex: Female
  Weight: 61 kg

DRUGS (2)
  1. CARBAMAZEPINE [Suspect]
     Active Substance: CARBAMAZEPINE
     Indication: Schizophrenia
     Dosage: 0.2 G, BID
     Route: 048
     Dates: start: 20241223, end: 20250107
  2. CARBAMAZEPINE [Suspect]
     Active Substance: CARBAMAZEPINE
     Dosage: 0.3 G, BID
     Route: 048
     Dates: start: 20250108, end: 20250109

REACTIONS (9)
  - Lip swelling [Recovering/Resolving]
  - Rash [Recovering/Resolving]
  - Rash erythematous [Unknown]
  - Chapped lips [Unknown]
  - Lip pain [Unknown]
  - Cheilitis [Unknown]
  - Drug eruption [Unknown]
  - Erythema [Unknown]
  - Product use in unapproved indication [Unknown]

NARRATIVE: CASE EVENT DATE: 20241223
